FAERS Safety Report 25728041 (Version 3)
Quarter: 2025Q4

REPORT INFORMATION
  Report Type: Spontaneous
  Country: EU (occurrence: EU)
  Receive Date: 20250826
  Receipt Date: 20251230
  Transmission Date: 20260118
  Serious: Yes (Other)
  Sender: JOHNSON AND JOHNSON
  Company Number: EU-JNJFOC-20241235316

PATIENT
  Sex: Female
  Weight: 47 kg

DRUGS (14)
  1. RYBREVANT [Suspect]
     Active Substance: AMIVANTAMAB-VMJW
     Indication: Non-small cell lung cancer stage IV
  2. RYBREVANT [Suspect]
     Active Substance: AMIVANTAMAB-VMJW
  3. RYBREVANT [Suspect]
     Active Substance: AMIVANTAMAB-VMJW
     Dosage: 380 MG/M?
  4. RYBREVANT [Suspect]
     Active Substance: AMIVANTAMAB-VMJW
     Dosage: 380 MG/M?
  5. RYBREVANT [Suspect]
     Active Substance: AMIVANTAMAB-VMJW
     Dosage: INFUSION NO: 13; CURRENT DOSAGE: 380 MG/M?; DATE OF INTERRUPTION; 09-MAY-2025
  6. RYBREVANT [Suspect]
     Active Substance: AMIVANTAMAB-VMJW
  7. RYBREVANT [Suspect]
     Active Substance: AMIVANTAMAB-VMJW
     Dosage: DOSAGE CHANGE SINCE THE LAST VISIT: MODIFICATION DATE - 30-OCT-2025, CURRENT DOSAGE - 451 MG/SQUARE METRE
  8. RYBREVANT [Suspect]
     Active Substance: AMIVANTAMAB-VMJW
     Dosage: INFUSION NO:20, DATE OF VISIT: 19-NOV-2025, DATE OF LAST INFUSION: 20-NOV-2025
  9. RYBREVANT [Suspect]
     Active Substance: AMIVANTAMAB-VMJW
     Dosage: DATE OF LAST INFUSION- 27-MAR-2025 (INFUSION 10)
  10. RYBREVANT [Suspect]
     Active Substance: AMIVANTAMAB-VMJW
     Dosage: INFUSION NO:20, DATE OF VISIT: 19-NOV-2025, DATE OF LAST INFUSION: 20-NOV-2025
  11. PEMETREXED [Suspect]
     Active Substance: PEMETREXED
     Indication: Non-small cell lung cancer
  12. PEMETREXED [Suspect]
     Active Substance: PEMETREXED
  13. PEMETREXED [Suspect]
     Active Substance: PEMETREXED
  14. PEMETREXED [Suspect]
     Active Substance: PEMETREXED

REACTIONS (3)
  - Arrhythmia [Unknown]
  - Folliculitis [Unknown]
  - General physical health deterioration [Unknown]
